FAERS Safety Report 9741376 (Version 2)
Quarter: 2014Q1

REPORT INFORMATION
  Report Type: Report from Study
  Country: JP (occurrence: JP)
  Receive Date: 20131209
  Receipt Date: 20140310
  Transmission Date: 20141002
  Serious: Yes (Death, Other)
  Sender: FDA-Public Use
  Company Number: JP-GILEAD-2013-0089278

PATIENT
  Age: 85 Year
  Sex: Female
  Weight: 45 kg

DRUGS (8)
  1. AMBRISENTAN [Suspect]
     Indication: PULMONARY ARTERIAL HYPERTENSION
     Dosage: 5 MG, QD
     Route: 048
     Dates: start: 20120301, end: 20120901
  2. PREDNISOLONE [Concomitant]
     Route: 048
  3. ANPLAG [Concomitant]
     Route: 048
  4. ACECOL                             /01140001/ [Concomitant]
     Route: 048
  5. OLMETEC [Concomitant]
     Route: 048
  6. ADALAT [Concomitant]
     Route: 048
  7. AMLODIN [Concomitant]
     Route: 048
  8. FUROSEMIDE [Concomitant]
     Route: 048

REACTIONS (2)
  - Cardiac failure [Fatal]
  - Pneumonia bacterial [Fatal]
